FAERS Safety Report 7686394-2 (Version None)
Quarter: 2011Q3

REPORT INFORMATION
  Report Type: 
  Country: None (occurrence: None)
  Receive Date: 20110816
  Receipt Date: 20110803
  Transmission Date: 20111222
  Serious: Yes (Other)
  Sender: FDA-Public Use
  Company Number: CH-ELI_LILLY_AND_COMPANY-CH201010004629

PATIENT
  Age: 48 Year
  Sex: Female

DRUGS (3)
  1. TIZANIDINE HCL [Concomitant]
     Indication: TENSION
     Dosage: 4 MG, DAILY (1/D)
     Route: 048
     Dates: start: 20100101
  2. CYMBALTA [Suspect]
     Indication: DEPRESSION
     Dosage: 90 MG, DAILY (1/D)
     Route: 048
     Dates: start: 20100101
  3. LORAZEPAM [Concomitant]
     Indication: ANXIETY
     Dosage: 5 MG, DAILY (1/D)
     Route: 048
     Dates: start: 20100101

REACTIONS (3)
  - MATERNAL EXPOSURE DURING PREGNANCY [None]
  - PLACENTA PRAEVIA [None]
  - DEPRESSION [None]
